FAERS Safety Report 9584102 (Version 2)
Quarter: 2013Q4

REPORT INFORMATION
  Report Type: Spontaneous
  Country: US (occurrence: US)
  Receive Date: 20131002
  Receipt Date: 20131002
  Transmission Date: 20140711
  Serious: No
  Sender: FDA-Public Use
  Company Number: US-AMGEN-USASP2013044814

PATIENT
  Age: 42 Year
  Sex: Female
  Weight: 78.46 kg

DRUGS (5)
  1. ENBREL [Suspect]
     Indication: PRODUCT USED FOR UNKNOWN INDICATION
     Dosage: 50 MG, QWK
     Route: 058
  2. LISINOPRIL [Concomitant]
     Dosage: 2.5 MG, UNK
  3. LEVOTHYROXIN [Concomitant]
     Dosage: 25 MUG, UNK
  4. VITAMIN D                          /00107901/ [Concomitant]
     Dosage: 1000 UNIT, UNK
  5. ANTIOXIDANT                        /02147801/ [Concomitant]
     Dosage: UNK

REACTIONS (5)
  - Urticaria [Unknown]
  - Skin warm [Unknown]
  - Contusion [Recovered/Resolved]
  - Gastritis [Unknown]
  - Abdominal pain upper [Unknown]
